FAERS Safety Report 7389696-2 (Version None)
Quarter: 2011Q2

REPORT INFORMATION
  Report Type: 
  Country: None (occurrence: None)
  Receive Date: 20110401
  Receipt Date: 20110328
  Transmission Date: 20111010
  Serious: Yes (Other)
  Sender: FDA-Public Use
  Company Number: FR-MERCK-1103FRA00158

PATIENT
  Age: 58 Year
  Sex: Male

DRUGS (3)
  1. ISENTRESS [Suspect]
     Indication: HIV INFECTION
     Route: 048
     Dates: start: 20101119, end: 20110220
  2. ETRAVIRINE [Suspect]
     Indication: HIV INFECTION
     Route: 048
     Dates: start: 20101119, end: 20110220
  3. DARUNAVIR [Suspect]
     Indication: HIV INFECTION
     Route: 048
     Dates: start: 20101119, end: 20110220

REACTIONS (5)
  - SLEEP DISORDER [None]
  - DEPRESSION [None]
  - ANXIETY DISORDER [None]
  - PAIN IN EXTREMITY [None]
  - NIGHTMARE [None]
